FAERS Safety Report 9612994 (Version 1)
Quarter: 2013Q4

REPORT INFORMATION
  Report Type: Spontaneous
  Country: PL (occurrence: PL)
  Receive Date: 20131010
  Receipt Date: 20131010
  Transmission Date: 20140711
  Serious: Yes (Hospitalization)
  Sender: FDA-Public Use
  Company Number: PL-NOVEN-13PL007815

PATIENT
  Age: 31 Year
  Sex: Female

DRUGS (6)
  1. PAROXETINE [Suspect]
     Indication: PRODUCT USED FOR UNKNOWN INDICATION
     Dosage: 100 MG, UNK
     Route: 048
  2. PAROXETINE [Suspect]
     Dosage: 20 MG, QD
     Route: 065
  3. HYDROXYCARBAMIDE [Suspect]
     Indication: ESSENTIAL THROMBOCYTHAEMIA
     Dosage: 10 G, UNK
     Route: 065
  4. HYDROXYCARBAMIDE [Suspect]
     Dosage: 500 MG, QD
     Route: 065
  5. HYDROXYCARBAMIDE [Suspect]
     Dosage: 15 TABLETS OF  500 MG, UNK
     Route: 065
  6. ETHANOL [Suspect]
     Indication: PRODUCT USED FOR UNKNOWN INDICATION
     Dosage: FEW GLASSES OF VODKA

REACTIONS (5)
  - Macrocytosis [Unknown]
  - Psychomotor hyperactivity [Unknown]
  - Suicide attempt [Unknown]
  - Overdose [Unknown]
  - Depressed mood [Unknown]
